FAERS Safety Report 5607958-3 (Version None)
Quarter: 2008Q1

REPORT INFORMATION
  Report Type: 
  Country: None (occurrence: None)
  Receive Date: 20080130
  Receipt Date: 20080122
  Transmission Date: 20080703
  Serious: Yes (Other)
  Sender: FDA-Public Use
  Company Number: A0686689A

PATIENT
  Age: 63 Year
  Sex: Female
  Weight: 106.4 kg

DRUGS (19)
  1. ADVAIR DISKUS 100/50 [Suspect]
     Indication: ASTHMA
     Dosage: 1PUFF PER DAY
     Route: 055
     Dates: start: 20041101, end: 20070201
  2. ADVAIR DISKUS 100/50 [Suspect]
     Dosage: 2PUFF TWICE PER DAY
     Route: 055
     Dates: start: 20070201
  3. PLAVIX [Concomitant]
     Indication: CORONARY ARTERY DISEASE
     Dosage: 75MG PER DAY
     Route: 048
  4. FENOFIBRATE [Concomitant]
     Dosage: 130MG PER DAY
     Route: 048
  5. ASPIRIN [Concomitant]
     Indication: CORONARY ARTERY DISEASE
     Dosage: 81MG PER DAY
     Route: 048
  6. PROTONIX [Concomitant]
     Dosage: 40MG PER DAY
     Route: 048
  7. PREMARIN [Concomitant]
     Indication: HORMONE REPLACEMENT THERAPY
     Dosage: .3MG PER DAY
     Route: 048
  8. DIOVAN [Concomitant]
     Indication: HYPERTENSION
     Dosage: 160MG PER DAY
     Route: 048
  9. ADVICOR [Concomitant]
     Dosage: 1TAB PER DAY
     Route: 048
  10. SINGULAIR [Concomitant]
     Indication: ASTHMA
     Dosage: 10MG PER DAY
     Route: 048
  11. AMITRIPTYLINE HCL [Concomitant]
     Indication: PAIN
     Dosage: 400MG AT NIGHT
     Route: 048
  12. CRANBERRY TABLETS [Concomitant]
     Indication: URINARY TRACT INFECTION
     Route: 048
  13. FISH OIL [Concomitant]
     Dosage: 2000MG PER DAY
     Route: 048
  14. VITAMIN E [Concomitant]
     Route: 048
  15. GLUCOSAMINE + CHONDROITIN [Concomitant]
     Indication: ARTHRITIS
     Route: 048
  16. CALCIUM PLUS D [Concomitant]
     Indication: OSTEOPOROSIS
     Dosage: 500MG PER DAY
     Route: 048
  17. BYETTA [Concomitant]
     Dosage: 10MCG TWICE PER DAY
     Route: 058
  18. PRO-AIR [Concomitant]
     Indication: ASTHMA
     Route: 055
  19. EPIPEN [Concomitant]
     Indication: MULTIPLE ALLERGIES
     Route: 030

REACTIONS (5)
  - HYPERSENSITIVITY [None]
  - PLEURAL EFFUSION [None]
  - RECTOCELE [None]
  - RESPIRATION ABNORMAL [None]
  - RESPIRATORY DISTRESS [None]
